FAERS Safety Report 9287122 (Version 1)
Quarter: 2013Q2

REPORT INFORMATION
  Report Type: Spontaneous
  Country: US (occurrence: US)
  Receive Date: 20130513
  Receipt Date: 20130513
  Transmission Date: 20140414
  Serious: Yes (Death, Hospitalization, Other)
  Sender: FDA-Public Use
  Company Number: US-PFIZER INC-2013146666

PATIENT
  Age: 55 Year
  Sex: Male
  Weight: 113 kg

DRUGS (1)
  1. LIPITOR [Suspect]
     Dosage: UNK
     Dates: start: 201304

REACTIONS (9)
  - Renal impairment [Fatal]
  - Convulsion [Fatal]
  - Liver disorder [Fatal]
  - Hypersensitivity [Fatal]
  - Dyspnoea [Fatal]
  - Mutism [Fatal]
  - Feeling abnormal [Not Recovered/Not Resolved]
  - Abdominal pain upper [Not Recovered/Not Resolved]
  - Weight decreased [Not Recovered/Not Resolved]
